FAERS Safety Report 5751635-5 (Version None)
Quarter: 2008Q2

REPORT INFORMATION
  Report Type: 
  Country: None (occurrence: None)
  Receive Date: 20080528
  Receipt Date: 20080520
  Transmission Date: 20081010
  Serious: Yes (Other)
  Sender: FDA-Public Use
  Company Number: PHMT2008CA00526

PATIENT
  Sex: Female

DRUGS (2)
  1. RITALIN [Suspect]
     Indication: ATTENTION DEFICIT/HYPERACTIVITY DISORDER
     Dosage: 15 MG AM AND 10 MG IN THE AFTERNOON
     Route: 048
     Dates: start: 20060803
  2. RITALIN [Suspect]
     Dosage: 10 MG, BID

REACTIONS (2)
  - ACCOMMODATION DISORDER [None]
  - TIC [None]
